FAERS Safety Report 9137661 (Version 2)
Quarter: 2015Q1

REPORT INFORMATION
  Report Type: Spontaneous
  Country: CA (occurrence: CA)
  Receive Date: 20130304
  Receipt Date: 20150130
  Transmission Date: 20150721
  Serious: Yes (Other)
  Sender: FDA-Public Use
  Company Number: CA-BAUSCH-BL-2012-002286

PATIENT
  Age: 48 Year
  Sex: Male

DRUGS (5)
  1. PROXYMETACAINE [Concomitant]
     Route: 047
     Dates: start: 20121102, end: 20121102
  2. LOTEMAX [Suspect]
     Active Substance: LOTEPREDNOL ETABONATE
     Indication: POSTOPERATIVE CARE
     Dosage: DROPS; OPHTHALMIC
     Route: 047
  3. LIPOSIC OPHTHALMIC DROPS [Suspect]
     Active Substance: CARBOMER
     Indication: POSTOPERATIVE CARE
     Dosage: DROPS; OPHTHALMIC
     Route: 047
  4. BESIVANCE [Suspect]
     Active Substance: BESIFLOXACIN
     Indication: POSTOPERATIVE CARE
     Dosage: DROPS; OPHTHALMIC
     Route: 047
  5. BSS [Concomitant]
     Active Substance: CALCIUM CHLORIDE\MAGNESIUM CHLORIDE\POTASSIUM CHLORIDE\SODIUM ACETATE\SODIUM CHLORIDE\SODIUM CITRATE
     Route: 047
     Dates: start: 20121102, end: 20121102

REACTIONS (15)
  - Eye pain [Unknown]
  - Intentional product use issue [Recovered/Resolved]
  - Corneal flap complication [Recovered/Resolved]
  - Eye irritation [Recovered/Resolved]
  - Punctate keratitis [Recovered/Resolved]
  - Corneal striae [Unknown]
  - Photophobia [Not Recovered/Not Resolved]
  - Diffuse lamellar keratitis [Recovered/Resolved]
  - Muscle spasms [Recovered/Resolved]
  - Abdominal pain upper [Unknown]
  - Corneal infiltrates [Recovered/Resolved]
  - Photosensitivity reaction [Recovered/Resolved]
  - Ocular discomfort [Recovered/Resolved]
  - Oedema [Not Recovered/Not Resolved]
  - Vision blurred [Not Recovered/Not Resolved]

NARRATIVE: CASE EVENT DATE: 20121102
